FAERS Safety Report 6184748-7 (Version None)
Quarter: 2009Q2

REPORT INFORMATION
  Report Type: 
  Country: None (occurrence: None)
  Receive Date: 20090508
  Receipt Date: 20090506
  Transmission Date: 20091009
  Serious: Yes (Death, Hospitalization)
  Sender: FDA-Public Use
  Company Number: EG-EISAI INC.-E2020-04410-SPO-EG

PATIENT
  Age: 80 Year
  Sex: Female

DRUGS (1)
  1. ARICEPT [Suspect]
     Route: 048
     Dates: end: 20090401

REACTIONS (5)
  - ALTERED STATE OF CONSCIOUSNESS [None]
  - FALL [None]
  - FEMUR FRACTURE [None]
  - INTESTINAL OBSTRUCTION [None]
  - MECHANICAL VENTILATION [None]
